FAERS Safety Report 10147000 (Version 1)
Quarter: 2014Q2

REPORT INFORMATION
  Report Type: Spontaneous
  Country: FR (occurrence: FR)
  Receive Date: 20140501
  Receipt Date: 20140501
  Transmission Date: 20141212
  Serious: Yes (Hospitalization)
  Sender: FDA-Public Use
  Company Number: FR-VIIV HEALTHCARE LIMITED-B0988054A

PATIENT
  Sex: Male

DRUGS (8)
  1. ZIAGEN [Suspect]
     Indication: HIV INFECTION
     Route: 048
     Dates: start: 19980731, end: 2006
  2. EPIVIR [Suspect]
     Indication: HIV INFECTION
     Route: 048
     Dates: start: 20000522, end: 2006
  3. KIVEXA [Suspect]
     Indication: HIV INFECTION
     Route: 048
     Dates: start: 2006, end: 20130422
  4. ZERIT [Suspect]
     Indication: HIV INFECTION
     Route: 048
     Dates: start: 19980731, end: 20000522
  5. SUSTIVA [Suspect]
     Indication: HIV INFECTION
     Route: 048
     Dates: start: 19980731, end: 20130422
  6. ISENTRESS [Suspect]
     Indication: HIV INFECTION
     Route: 065
     Dates: start: 20130422
  7. INTELENCE [Suspect]
     Indication: HIV INFECTION
     Route: 065
     Dates: start: 20130422
  8. ANTIDIABETIC (UNSPECIFIED) [Concomitant]
     Indication: TYPE 2 DIABETES MELLITUS
     Route: 048

REACTIONS (1)
  - Lipodystrophy acquired [Not Recovered/Not Resolved]
